FAERS Safety Report 6230685-9 (Version None)
Quarter: 2009Q2

REPORT INFORMATION
  Report Type: 
  Country: None (occurrence: None)
  Receive Date: 20090611
  Receipt Date: 20090527
  Transmission Date: 20091009
  Serious: Yes (Other)
  Sender: FDA-Public Use
  Company Number: DSM-2009-00733

PATIENT
  Age: 65 Year
  Sex: Male
  Weight: 90 kg

DRUGS (4)
  1. SEVIKAR (OLMESARTAN MEDOXOMIL/AMLODIPINE BESILATE) (TABLET) [Suspect]
     Indication: HYPERTENSION
     Dosage: 40/10 MG, ORAL
     Route: 048
     Dates: start: 20090421, end: 20090424
  2. ALLOPURINOL [Concomitant]
  3. FUROSEMIDE [Concomitant]
  4. AMLOR (AMLODIPINE BESILATE) (AMLODIPINE BESILATE) [Concomitant]

REACTIONS (2)
  - DISEASE RECURRENCE [None]
  - GOUT [None]
